FAERS Safety Report 6882289-2 (Version None)
Quarter: 2010Q3

REPORT INFORMATION
  Report Type: 
  Country: None (occurrence: None)
  Receive Date: 20100702
  Receipt Date: 20090508
  Transmission Date: 20110219
  Serious: Yes (Other)
  Sender: FDA-Public Use
  Company Number: 2009213930

PATIENT
  Sex: Female

DRUGS (2)
  1. ZOLOFT [Suspect]
  2. ZYVOX [Suspect]
     Indication: ENTEROCOCCAL INFECTION

REACTIONS (2)
  - HYPERREFLEXIA [None]
  - SEROTONIN SYNDROME [None]
